FAERS Safety Report 9694499 (Version 2)
Quarter: 2014Q2

REPORT INFORMATION
  Report Type: Spontaneous
  Country: US (occurrence: US)
  Receive Date: 20131118
  Receipt Date: 20140516
  Transmission Date: 20141212
  Serious: No
  Sender: FDA-Public Use
  Company Number: US-SA-2013SA102825

PATIENT
  Age: 9 Year
  Sex: Female
  Weight: 31 kg

DRUGS (1)
  1. SKLICE [Suspect]
     Dosage: DOSE AND FREQUENCY: 0.5
     Route: 065
     Dates: start: 20130827, end: 20130827

REACTIONS (4)
  - Abdominal pain [Recovered/Resolved]
  - Mydriasis [Recovered/Resolved]
  - Abnormal behaviour [Recovered/Resolved]
  - Body temperature increased [Recovered/Resolved]
